FAERS Safety Report 23989009 (Version 1)
Quarter: 2024Q2

REPORT INFORMATION
  Report Type: Spontaneous
  Country: BG (occurrence: BG)
  Receive Date: 20240619
  Receipt Date: 20240619
  Transmission Date: 20240716
  Serious: Yes (Other)
  Sender: FDA-Public Use
  Company Number: BG-MankindUS-000190

PATIENT
  Age: 76 Year
  Sex: Male

DRUGS (8)
  1. FUROSEMIDE [Suspect]
     Active Substance: FUROSEMIDE
     Indication: Product used for unknown indication
     Dosage: IN MORNING FOR THE PAST 8 MONTHS
  2. PANTOPRAZOLE [Concomitant]
     Active Substance: PANTOPRAZOLE
     Indication: Product used for unknown indication
     Dosage: FOR THE PAST 8 MONTHS
  3. AMIODARONE HYDROCHLORIDE [Concomitant]
     Active Substance: AMIODARONE HYDROCHLORIDE
     Indication: Product used for unknown indication
     Dosage: FOR THE PAST 8 MONTHS
  4. APIXABAN [Concomitant]
     Active Substance: APIXABAN
     Indication: Product used for unknown indication
     Dosage: FOR THE PAST 8 MONTHS
  5. SPIRONOLACTONE [Concomitant]
     Active Substance: SPIRONOLACTONE
     Indication: Product used for unknown indication
     Dosage: FOR THE PAST 8 MONTHS
  6. BENFOTIAMINE, HYDROXOCOBALAMIN, PYRIDOXINE [Concomitant]
     Indication: Product used for unknown indication
     Dosage: FOR THE PAST 3 MONTHS
  7. PASSIFLORA [Concomitant]
     Indication: Product used for unknown indication
     Dosage: FOR THE PAST 3 MONTHS;
  8. PREGABALIN [Concomitant]
     Active Substance: PREGABALIN
     Indication: Product used for unknown indication
     Dosage: FOR THE PAST 3 MONTHS

REACTIONS (1)
  - Nodular melanoma [Unknown]
